FAERS Safety Report 8530684-8 (Version None)
Quarter: 2012Q3

REPORT INFORMATION
  Report Type: 
  Country: None (occurrence: None)
  Receive Date: 20120723
  Receipt Date: 20120711
  Transmission Date: 20120928
  Serious: Yes (Disabling, Other)
  Sender: FDA-Public Use
  Company Number: US-009507513-1111USA02611

PATIENT

DRUGS (6)
  1. BONIVA [Suspect]
     Route: 048
  2. FOSAMAX PLUS D [Suspect]
     Indication: OSTEOPENIA
     Dosage: 70/2800
     Route: 048
     Dates: start: 20060621, end: 20090125
  3. FOSAMAX [Suspect]
     Indication: OSTEOPENIA
     Dosage: 20 MG, UNK
     Route: 048
     Dates: start: 20050319
  4. FOSAMAX [Suspect]
     Dosage: 70 MG, UNK
     Route: 048
     Dates: start: 20090617, end: 20100218
  5. FOSAMAX [Suspect]
     Dosage: 70 MG, QW
     Route: 048
     Dates: start: 20050504, end: 20060402
  6. XANAX [Concomitant]
     Indication: ANXIETY
     Dosage: UNK
     Dates: start: 20010301, end: 20101001

REACTIONS (24)
  - RECTAL HAEMORRHAGE [None]
  - BREAST MASS [None]
  - MOUTH ULCERATION [None]
  - DEPRESSION [None]
  - LIP NEOPLASM BENIGN [None]
  - MIGRAINE [None]
  - HYPERCHOLESTEROLAEMIA [None]
  - WRONG TECHNIQUE IN DRUG USAGE PROCESS [None]
  - OSTEOPOROSIS [None]
  - CONSTIPATION [None]
  - OSTEONECROSIS OF JAW [None]
  - ANXIETY [None]
  - ORAL TORUS [None]
  - FIBROMA [None]
  - INFECTION [None]
  - BONE DISORDER [None]
  - VITAMIN D DEFICIENCY [None]
  - IMPAIRED HEALING [None]
  - BUNION [None]
  - MEMORY IMPAIRMENT [None]
  - TOOTH DISORDER [None]
  - SYNOVIAL CYST [None]
  - TOOTH FRACTURE [None]
  - ORAL DISORDER [None]
